FAERS Safety Report 25655277 (Version 2)
Quarter: 2025Q3

REPORT INFORMATION
  Report Type: Spontaneous
  Country: EU (occurrence: EU)
  Receive Date: 20250807
  Receipt Date: 20250923
  Transmission Date: 20251021
  Serious: Yes (Other)
  Sender: FRESENIUS KABI
  Company Number: None

PATIENT
  Age: 18 Year
  Sex: Male

DRUGS (2)
  1. ROPIVACAINE HYDROCHLORIDE [Suspect]
     Active Substance: ROPIVACAINE HYDROCHLORIDE
     Indication: Anaesthesia
     Route: 053
     Dates: start: 20250716, end: 20250716
  2. MEPIVACAINE HYDROCHLORIDE [Suspect]
     Active Substance: MEPIVACAINE HYDROCHLORIDE
     Indication: Anaesthesia
     Route: 053
     Dates: start: 20250716, end: 20250716

REACTIONS (6)
  - Local anaesthetic systemic toxicity [Recovering/Resolving]
  - Dysgeusia [Recovering/Resolving]
  - Confusional state [Recovering/Resolving]
  - Headache [Recovering/Resolving]
  - Dysarthria [Recovering/Resolving]
  - Muscle twitching [Recovering/Resolving]

NARRATIVE: CASE EVENT DATE: 20250716
